FAERS Safety Report 7157445-9 (Version None)
Quarter: 2010Q4

REPORT INFORMATION
  Report Type: 
  Country: None (occurrence: None)
  Receive Date: 20101214
  Receipt Date: 20101129
  Transmission Date: 20110411
  Serious: Yes (Congenital Anomaly)
  Sender: FDA-Public Use
  Company Number: A0899570A

PATIENT
  Sex: Female

DRUGS (2)
  1. PAXIL [Suspect]
     Dosage: 40MG UNKNOWN
     Dates: start: 20030209, end: 20030822
  2. PAROXETINE HCL [Suspect]
     Dosage: 40MG UNKNOWN
     Dates: start: 20031118, end: 20040216

REACTIONS (4)
  - DRUG EXPOSURE DURING PREGNANCY [None]
  - FOETAL GROWTH RESTRICTION [None]
  - INGUINAL HERNIA [None]
  - UMBILICAL HERNIA [None]
